FAERS Safety Report 8998433 (Version 1)
Quarter: 2013Q1

REPORT INFORMATION
  Report Type: Spontaneous
  Country: US (occurrence: US)
  Receive Date: 20130103
  Receipt Date: 20130103
  Transmission Date: 20140127
  Serious: Yes (Hospitalization)
  Sender: FDA-Public Use
  Company Number: US-ROCHE-1143089

PATIENT
  Sex: Male

DRUGS (3)
  1. PEGASYS [Suspect]
     Indication: CHRONIC HEPATITIS C
     Route: 058
     Dates: start: 20120905
  2. TELAPREVIR [Suspect]
     Indication: CHRONIC HEPATITIS C
     Route: 065
     Dates: start: 20120906, end: 20121128
  3. RIBAPAK [Suspect]
     Indication: CHRONIC HEPATITIS C
     Dosage: DIVIDED DOSES
     Route: 065
     Dates: start: 20120906

REACTIONS (13)
  - Thrombophlebitis [Unknown]
  - Fatigue [Unknown]
  - Nausea [Unknown]
  - Decreased appetite [Unknown]
  - Rash vesicular [Unknown]
  - Vision blurred [Unknown]
  - Vomiting [Unknown]
  - Vertigo [Unknown]
  - Malaise [Unknown]
  - Temperature intolerance [Unknown]
  - Aphagia [Unknown]
  - Eating disorder [Unknown]
  - Drug dose omission [Unknown]
